FAERS Safety Report 24299724 (Version 1)
Quarter: 2024Q3

REPORT INFORMATION
  Report Type: Spontaneous
  Country: CN (occurrence: CN)
  Receive Date: 20240909
  Receipt Date: 20240909
  Transmission Date: 20241016
  Serious: Yes (Life-Threatening)
  Sender: BAXTER
  Company Number: None

PATIENT
  Age: 56 Year
  Sex: Female
  Weight: 60 kg

DRUGS (6)
  1. CYCLOPHOSPHAMIDE [Suspect]
     Active Substance: CYCLOPHOSPHAMIDE
     Indication: Breast cancer female
     Dosage: 1000 MG, ONE TIME IN ONE DAY, DILUTED WITH 100 ML OF 0.9 % SODIUM CHLORIDE, AS A PART OF AC-T REGIME
     Route: 041
     Dates: start: 20240813, end: 20240813
  2. CYCLOPHOSPHAMIDE [Suspect]
     Active Substance: CYCLOPHOSPHAMIDE
     Indication: Chemotherapy
  3. SODIUM CHLORIDE [Suspect]
     Active Substance: SODIUM CHLORIDE
     Indication: Medication dilution
     Dosage: 100 ML (0.9%), ONE TIME IN ONE DAY, USED TO DILUTE 1000 MG CYCLOPHOSPHAMIDE (DOSAGE FORM:INJECTION)
     Route: 041
     Dates: start: 20240813, end: 20240813
  4. DEXTROSE [Suspect]
     Active Substance: DEXTROSE\DEXTROSE MONOHYDRATE
     Indication: Medication dilution
     Dosage: 100 ML (5%), ONE TIME IN ONE DAY, USED TO DILUTE 100 MG PIRARUBICIN HYDROCHLORIDE (DOSAGE FORM:INJEC
     Route: 041
     Dates: start: 20240813, end: 20240813
  5. PIRARUBICIN HYDROCHLORIDE [Suspect]
     Active Substance: PIRARUBICIN HYDROCHLORIDE
     Indication: Breast cancer female
     Dosage: 100 MG, ONE TIME IN ONE DAY, DILUTED WITH 100 ML OF 5% GLUCOSE, AS A PART OF AC-T, Q14D CYCLICAL
     Route: 041
     Dates: start: 20240813, end: 20240813
  6. PIRARUBICIN HYDROCHLORIDE [Suspect]
     Active Substance: PIRARUBICIN HYDROCHLORIDE
     Indication: Chemotherapy

REACTIONS (1)
  - White blood cell count decreased [Recovered/Resolved]

NARRATIVE: CASE EVENT DATE: 20240820
